FAERS Safety Report 12485132 (Version 1)
Quarter: 2016Q2

REPORT INFORMATION
  Report Type: Spontaneous
  Country: DE (occurrence: DE)
  Receive Date: 20160621
  Receipt Date: 20160621
  Transmission Date: 20160815
  Serious: Yes (Congenital Anomaly)
  Sender: FDA-Public Use
  Company Number: DE-ELI_LILLY_AND_COMPANY-DE201606004259

PATIENT
  Weight: 3.6 kg

DRUGS (6)
  1. DIPIPERON [Concomitant]
     Active Substance: PIPAMPERONE
     Indication: SLEEP DISORDER
     Dosage: 40 MG, QD
     Route: 064
  2. CYMBALTA [Suspect]
     Active Substance: DULOXETINE HYDROCHLORIDE
     Indication: DEPRESSION
     Dosage: 90 MG, QD
     Route: 064
     Dates: start: 20150109, end: 20151005
  3. FEMIBION                           /07499601/ [Concomitant]
     Indication: PROPHYLAXIS OF NEURAL TUBE DEFECT
     Dosage: UNK, UNKNOWN
     Route: 064
  4. CYMBALTA [Suspect]
     Active Substance: DULOXETINE HYDROCHLORIDE
     Indication: DEPRESSION
     Dosage: 90 MG, QD
     Route: 064
     Dates: start: 20150109, end: 20151005
  5. FEMIBION                           /07499601/ [Concomitant]
     Indication: PROPHYLAXIS OF NEURAL TUBE DEFECT
     Dosage: UNK, UNKNOWN
     Route: 064
  6. DIPIPERON [Concomitant]
     Active Substance: PIPAMPERONE
     Indication: SLEEP DISORDER
     Dosage: 40 MG, QD
     Route: 064

REACTIONS (2)
  - Congenital aortic valve stenosis [Not Recovered/Not Resolved]
  - Foetal exposure during pregnancy [Unknown]

NARRATIVE: CASE EVENT DATE: 20150109
